FAERS Safety Report 12356409 (Version 2)
Quarter: 2017Q1

REPORT INFORMATION
  Report Type: Spontaneous
  Country: US (occurrence: US)
  Receive Date: 20160511
  Receipt Date: 20170224
  Transmission Date: 20170428
  Serious: Yes (Other)
  Sender: FDA-Public Use
  Company Number: US-ELI_LILLY_AND_COMPANY-US201605000281

PATIENT
  Sex: Female
  Weight: 52.15 kg

DRUGS (4)
  1. CYMBALTA [Suspect]
     Active Substance: DULOXETINE HYDROCHLORIDE
     Indication: FIBROMYALGIA
  2. VICODIN [Concomitant]
     Active Substance: ACETAMINOPHEN\HYDROCODONE BITARTRATE
     Dosage: UNK, PRN
     Route: 065
  3. CYMBALTA [Suspect]
     Active Substance: DULOXETINE HYDROCHLORIDE
     Indication: DEPRESSION
  4. CYMBALTA [Suspect]
     Active Substance: DULOXETINE HYDROCHLORIDE
     Indication: PAIN
     Dosage: 30 MG, UNKNOWN
     Route: 065
     Dates: start: 20090909

REACTIONS (13)
  - Dysphoria [Unknown]
  - Vertigo [Unknown]
  - Dizziness [Unknown]
  - Affect lability [Unknown]
  - Paraesthesia [Unknown]
  - Irritability [Unknown]
  - Insomnia [Unknown]
  - Nightmare [Unknown]
  - Mood swings [Unknown]
  - Sleep disorder [Unknown]
  - Suicidal ideation [Unknown]
  - Drug withdrawal syndrome [Unknown]
  - Nausea [Unknown]
